FAERS Safety Report 5602729-6 (Version None)
Quarter: 2008Q1

REPORT INFORMATION
  Report Type: 
  Country: None (occurrence: None)
  Receive Date: 20080125
  Receipt Date: 20080123
  Transmission Date: 20080703
  Serious: Yes (Life-Threatening, Hospitalization)
  Sender: FDA-Public Use
  Company Number: GB-BRISTOL-MYERS SQUIBB COMPANY-13056544

PATIENT
  Age: 78 Year
  Sex: Male

DRUGS (11)
  1. CETUXIMAB [Suspect]
     Indication: COLORECTAL CANCER METASTATIC
     Dosage: CETUXIMAB 2MG/ML
     Route: 041
     Dates: start: 20050429, end: 20050719
  2. FLUOROURACIL [Suspect]
     Indication: COLORECTAL CANCER METASTATIC
     Dosage: DISCONTINUED ON 29 JUL 2007
     Route: 042
     Dates: start: 20050429, end: 20050705
  3. FOLINIC ACID [Suspect]
     Indication: COLORECTAL CANCER METASTATIC
     Dosage: DISCONTINUED ON 29 JUL 2007
     Route: 042
     Dates: start: 20050429, end: 20050705
  4. IRINOTECAN [Suspect]
     Indication: COLORECTAL CANCER METASTATIC
     Dosage: DISCONTINUED ON 29 JUL 2007
     Route: 042
     Dates: start: 20050429, end: 20050705
  5. ATENOLOL [Concomitant]
  6. CIPROFLOXACIN [Concomitant]
  7. CODEINE PHOSPHATE [Concomitant]
  8. DICLOFENAC [Concomitant]
  9. METRONIDAZOLE [Concomitant]
  10. POTASSIUM CHLORIDE [Concomitant]
  11. TINZAPARIN [Concomitant]

REACTIONS (1)
  - MYOCARDIAL INFARCTION [None]
